FAERS Safety Report 5671234-3 (Version None)
Quarter: 2008Q1

REPORT INFORMATION
  Report Type: 
  Country: None (occurrence: None)
  Receive Date: 20080313
  Receipt Date: 20080303
  Transmission Date: 20080703
  Serious: Yes (Death)
  Sender: FDA-Public Use
  Company Number: 024875

PATIENT
  Age: 66 Year
  Sex: Male

DRUGS (5)
  1. CYCLOSPORINE [Suspect]
  2. SIMVASTATIN [Suspect]
     Dosage: 10 MG,
  3. COLCHICUM JTL LIQ [Suspect]
     Indication: GOUT
     Dosage: 0.6 MG, QD,; 0.6 MG, BID,
  4. MYCOPHENOLATE MOFETIL [Concomitant]
  5. PREDNISONE TAB [Concomitant]

REACTIONS (7)
  - ASTHENIA [None]
  - BLOOD CREATINE PHOSPHOKINASE INCREASED [None]
  - MYALGIA [None]
  - MYOPATHY [None]
  - OPHTHALMOPLEGIA [None]
  - QUADRIPLEGIA [None]
  - SEPSIS [None]
